FAERS Safety Report 10528187 (Version 1)
Quarter: 2014Q4

REPORT INFORMATION
  Report Type: Spontaneous
  Country: US (occurrence: None)
  Receive Date: 20141016
  Receipt Date: 20141016
  Transmission Date: 20150528
  Serious: No
  Sender: FDA-Public Use
  Company Number: None

PATIENT
  Age: 26 Year
  Sex: Female

DRUGS (1)
  1. TECFIDERA [Suspect]
     Active Substance: DIMETHYL FUMARATE
     Indication: MULTIPLE SCLEROSIS
     Route: 048
     Dates: start: 20141003, end: 20141014

REACTIONS (6)
  - Rash generalised [None]
  - Erythema [None]
  - Pyrexia [None]
  - Skin burning sensation [None]
  - Abdominal discomfort [None]
  - Chills [None]

NARRATIVE: CASE EVENT DATE: 20141014
